FAERS Safety Report 7078988-2 (Version None)
Quarter: 2010Q4

REPORT INFORMATION
  Report Type: 
  Country: None (occurrence: None)
  Receive Date: 20101021
  Receipt Date: 20101007
  Transmission Date: 20110411
  Serious: Yes (Other)
  Sender: FDA-Public Use
  Company Number: GER/UKI/10/0015630

PATIENT
  Age: 36 Year
  Sex: Female

DRUGS (2)
  1. TERBINAFINE (TERBINAFINE) [Suspect]
     Indication: ONYCHOMYCOSIS
     Dosage: 250 MG, 1 IN 1 D), ORAL
     Route: 048
     Dates: start: 20100629, end: 20100701
  2. DEPO-PROVERA [Suspect]
     Indication: CONTRACEPTION
     Dosage: 150 MG, 1 IN 3 M, INTRAMUSCULAR
     Route: 030
     Dates: start: 20090301

REACTIONS (2)
  - DRUG INTERACTION [None]
  - METRORRHAGIA [None]
